FAERS Safety Report 8841413 (Version 2)
Quarter: 2013Q1

REPORT INFORMATION
  Report Type: Spontaneous
  Country: FR (occurrence: FR)
  Receive Date: 20121012
  Receipt Date: 20130108
  Transmission Date: 20140127
  Serious: Yes (Other)
  Sender: FDA-Public Use
  Company Number: PHHY2012FR090187

PATIENT
  Sex: Female

DRUGS (1)
  1. EXELON PATCH [Suspect]
     Indication: DEMENTIA WITH LEWY BODIES
     Dosage: 4.6 MG PER 24 HOURS
     Route: 062
     Dates: start: 20120901, end: 201210

REACTIONS (2)
  - Camptocormia [Not Recovered/Not Resolved]
  - Condition aggravated [Not Recovered/Not Resolved]
